FAERS Safety Report 11803469 (Version 1)
Quarter: 2015Q4

REPORT INFORMATION
  Report Type: Spontaneous
  Country: DK (occurrence: DK)
  Receive Date: 20151204
  Receipt Date: 20151204
  Transmission Date: 20160305
  Serious: Yes (Death, Life-Threatening)
  Sender: FDA-Public Use
  Company Number: DK-TEVA-613180ACC

PATIENT
  Age: 49 Year
  Sex: Male
  Weight: 80 kg

DRUGS (2)
  1. CITALOPRAM [Suspect]
     Active Substance: CITALOPRAM HYDROBROMIDE
     Indication: DEPRESSION
     Dosage: 20 MILLIGRAM DAILY;
     Route: 048
     Dates: start: 20150922, end: 20151015
  2. IMOZOP [Concomitant]
     Active Substance: ZOPICLONE
     Indication: SLEEP DISORDER
     Dates: start: 20150922, end: 20151014

REACTIONS (4)
  - Mental status changes [Fatal]
  - Completed suicide [Fatal]
  - Malaise [Unknown]
  - Psychotic disorder [Fatal]

NARRATIVE: CASE EVENT DATE: 20150922
